FAERS Safety Report 14689315 (Version 1)
Quarter: 2018Q1

REPORT INFORMATION
  Report Type: Spontaneous
  Country: CH (occurrence: CH)
  Receive Date: 20180328
  Receipt Date: 20180328
  Transmission Date: 20180509
  Serious: Yes (Hospitalization)
  Sender: FDA-Public Use
  Company Number: CH-TEVA-2018-CH-872269

PATIENT
  Age: 52 Year
  Sex: Female
  Weight: 100 kg

DRUGS (2)
  1. TRAMADOL MEPHA RETARD [Suspect]
     Active Substance: TRAMADOL HYDROCHLORIDE
     Route: 048
  2. NALTREXIN [Suspect]
     Active Substance: NALTREXONE HYDROCHLORIDE
     Route: 048
     Dates: start: 20180112

REACTIONS (7)
  - Disorientation [Recovering/Resolving]
  - Restlessness [Recovering/Resolving]
  - Dizziness [Recovering/Resolving]
  - Burning sensation [Recovering/Resolving]
  - Confusional state [Recovering/Resolving]
  - Withdrawal syndrome [Recovering/Resolving]
  - Nausea [Recovering/Resolving]

NARRATIVE: CASE EVENT DATE: 20180112
